FAERS Safety Report 26066233 (Version 1)
Quarter: 2025Q4

REPORT INFORMATION
  Report Type: Spontaneous
  Country: CN (occurrence: CN)
  Receive Date: 20251119
  Receipt Date: 20251119
  Transmission Date: 20260118
  Serious: Yes (Other)
  Sender: MERCK SHARP & DOHME LLC
  Company Number: CN-009507513-2351324

PATIENT
  Age: 60 Year
  Sex: Female
  Weight: 58 kg

DRUGS (1)
  1. INVANZ [Suspect]
     Active Substance: ERTAPENEM SODIUM
     Indication: Symptomatic treatment
     Dosage: 1G, ONCE DAILY
     Route: 041
     Dates: start: 20251018, end: 20251023

REACTIONS (6)
  - Mental disorder [Recovering/Resolving]
  - Agitation [Unknown]
  - Delirium [Recovering/Resolving]
  - Hallucination [Recovering/Resolving]
  - Initial insomnia [Unknown]
  - Sensory disturbance [Unknown]

NARRATIVE: CASE EVENT DATE: 20251001
